FAERS Safety Report 19787220 (Version 2)
Quarter: 2022Q2

REPORT INFORMATION
  Report Type: Spontaneous
  Country: BE (occurrence: BE)
  Receive Date: 20210903
  Receipt Date: 20220614
  Transmission Date: 20220721
  Serious: Yes (Hospitalization, Other)
  Sender: FDA-Public Use
  Company Number: BE-ACCORD-236249

PATIENT
  Age: 63 Year
  Sex: Male
  Weight: 79 kg

DRUGS (43)
  1. CYTARABINE [Suspect]
     Active Substance: CYTARABINE
     Indication: Diffuse large B-cell lymphoma stage III
     Dosage: 2000 MG/M2, EVERY 3 WEEKS (CYCLE 1-3) REGIMEN 1
     Route: 042
     Dates: start: 20210804
  2. CARBOPLATIN [Suspect]
     Active Substance: CARBOPLATIN
     Indication: Diffuse large B-cell lymphoma stage III
     Dosage: 375 MG, EVERY 3 WEEKS (CYCLE 1-3) REGIMEN 1
     Route: 042
     Dates: start: 20210804
  3. EPCORITAMAB [Suspect]
     Active Substance: EPCORITAMAB
     Indication: Diffuse large B-cell lymphoma stage III
     Dosage: 0.16 MG, SINGLE (PRIMING DOSE) DUOBODY-CD3XCD20 REGIMEN1
     Route: 058
     Dates: start: 20210804, end: 20210804
  4. DEXAMETHASONE [Suspect]
     Active Substance: DEXAMETHASONE
     Indication: Diffuse large B-cell lymphoma stage III
     Dosage: 40 MG, DAY 1-4 OF EACH 21-DAY CYCLE (CYCLE 1-3) REGIMEN 1
     Route: 042
     Dates: start: 20210804
  5. RITUXIMAB [Suspect]
     Active Substance: RITUXIMAB
     Indication: Diffuse large B-cell lymphoma stage III
     Dosage: 375 MG/M2, EVERY 3 WEEKS (CYCLE 1-3) REGIMEN 1
     Route: 042
     Dates: start: 20210804
  6. OXALIPLATIN [Suspect]
     Active Substance: OXALIPLATIN
     Indication: Diffuse large B-cell lymphoma stage III
     Dosage: UNK, EVERY 3 WEEKS (CYCLE 1-3)
     Route: 042
  7. VITAMIN A PALMITATE [Concomitant]
     Active Substance: VITAMIN A PALMITATE
     Dates: start: 20210805
  8. ONDANSETRON [Concomitant]
     Active Substance: ONDANSETRON
     Dates: start: 20210804
  9. FILGRASTIM [Concomitant]
     Active Substance: FILGRASTIM
     Dates: start: 20210726, end: 20210804
  10. AUGMENTIN [Concomitant]
     Active Substance: AMOXICILLIN\CLAVULANATE POTASSIUM
     Dates: start: 20210712, end: 20210722
  11. LASIX [Concomitant]
     Active Substance: FUROSEMIDE
     Dates: start: 20210805, end: 20210811
  12. ENOXAPARIN SODIUM [Concomitant]
     Active Substance: ENOXAPARIN SODIUM
     Dates: start: 20210719, end: 20210729
  13. ACETAMINOPHEN [Concomitant]
     Active Substance: ACETAMINOPHEN
     Dates: start: 20210718, end: 20210804
  14. HYALURONATE SODIUM\TREHALOSE [Concomitant]
     Active Substance: HYALURONATE SODIUM\TREHALOSE
     Dates: start: 20210804
  15. AMITRIPTYLINE HYDROCHLORIDE [Concomitant]
     Active Substance: AMITRIPTYLINE HYDROCHLORIDE
     Dates: start: 20210729, end: 20210927
  16. D CURE FORTE [Concomitant]
     Dates: start: 20210718
  17. ESOMEPRAZOLE [Concomitant]
     Active Substance: ESOMEPRAZOLE
     Dates: start: 20210718
  18. TRADONAL ODIS [Concomitant]
     Dates: start: 20210718, end: 20211029
  19. FASTURTEC [Concomitant]
     Active Substance: RASBURICASE
     Dates: start: 20210807, end: 20210812
  20. FASTURTEC [Concomitant]
     Active Substance: RASBURICASE
     Dosage: UNK
     Dates: start: 20210804, end: 20210812
  21. FLUCONAZOLE [Concomitant]
     Active Substance: FLUCONAZOLE
     Dates: start: 20210804
  22. XANAX [Concomitant]
     Active Substance: ALPRAZOLAM
     Dates: start: 20210728, end: 20210728
  23. XALATAN [Concomitant]
     Active Substance: LATANOPROST
     Dates: start: 20210718
  24. ACETAMINOPHEN [Concomitant]
     Active Substance: ACETAMINOPHEN
     Route: 048
     Dates: start: 20210804, end: 20210804
  25. IBUPROFEN [Concomitant]
     Active Substance: IBUPROFEN
     Dates: start: 20210712, end: 20210714
  26. DEXAMETHASONE [Concomitant]
     Active Substance: DEXAMETHASONE
     Dosage: 40 MG
     Route: 048
     Dates: start: 20210805, end: 20210805
  27. CLEMASTINE FUMARATE [Concomitant]
     Active Substance: CLEMASTINE FUMARATE
     Dosage: 2 MG
     Route: 042
     Dates: start: 20210804, end: 20210804
  28. ACYCLOVIR [Concomitant]
     Active Substance: ACYCLOVIR
     Dates: start: 20210621
  29. ZOFRAN [Concomitant]
     Active Substance: ONDANSETRON HYDROCHLORIDE
     Dates: start: 20210808, end: 20210810
  30. LORAZEPAM [Concomitant]
     Active Substance: LORAZEPAM
     Dates: start: 20210804, end: 20210804
  31. OMEPRAZOLE [Concomitant]
     Active Substance: OMEPRAZOLE
     Dates: start: 20210719
  32. LITICAN [ALIZAPRIDE HYDROCHLORIDE] [Concomitant]
     Dates: start: 20210804, end: 20210804
  33. LATANOPROST [Concomitant]
     Active Substance: LATANOPROST
     Dates: start: 20210719, end: 20210916
  34. HUMULINE [Concomitant]
     Dates: start: 20210805, end: 20210809
  35. BACTRIM [Concomitant]
     Active Substance: SULFAMETHOXAZOLE\TRIMETHOPRIM
     Dates: start: 20210718
  36. BUMETANIDE [Concomitant]
     Active Substance: BUMETANIDE
     Dates: start: 20210806, end: 20210808
  37. LIPEGFILGRASTIM [Concomitant]
     Active Substance: LIPEGFILGRASTIM
     Dates: start: 20210805, end: 20210805
  38. FEBUXOSTAT [Concomitant]
     Active Substance: FEBUXOSTAT
     Dates: start: 20201004
  39. MOVICOL [Concomitant]
     Active Substance: POLYETHYLENE GLYCOL 3350\POTASSIUM CHLORIDE\SODIUM BICARBONATE\SODIUM CHLORIDE
     Dates: start: 20210810
  40. MONOFREE DEXAMETHASON [DEXAMETHASONE SODIUM PHOSPHATE] [Concomitant]
     Dates: start: 20210804
  41. MOXONIDINE [Concomitant]
     Active Substance: MOXONIDINE
     Dates: start: 20210719, end: 20210827
  42. DEXERYL [CHLORPHENAMINE MALEATE;DEXTROMETHORPHAN HYDROBROMIDE;GUAIFENE [Concomitant]
     Dates: start: 20210810, end: 20210813
  43. COLCHICINE [Concomitant]
     Active Substance: COLCHICINE
     Dates: start: 20210712, end: 20210804

REACTIONS (3)
  - Tumour lysis syndrome [Not Recovered/Not Resolved]
  - Acute kidney injury [Recovered/Resolved]
  - Off label use [Unknown]

NARRATIVE: CASE EVENT DATE: 20210807
